FAERS Safety Report 23787367 (Version 1)
Quarter: 2024Q2

REPORT INFORMATION
  Report Type: Spontaneous
  Country: US (occurrence: US)
  Receive Date: 20240426
  Receipt Date: 20240426
  Transmission Date: 20240716
  Serious: No
  Sender: FDA-Public Use
  Company Number: US-HBP-2024US030714

PATIENT
  Sex: Female

DRUGS (1)
  1. VALCHLOR [Suspect]
     Active Substance: MECHLORETHAMINE
     Indication: Cutaneous T-cell lymphoma
     Dosage: THIN FILM, QD TO AFFECTED SKIN
     Route: 061

REACTIONS (3)
  - Skin hypertrophy [Unknown]
  - Off label use [Unknown]
  - Dry skin [Unknown]
